FAERS Safety Report 15337340 (Version 3)
Quarter: 2020Q2

REPORT INFORMATION
  Report Type: Other
  Country: CA (occurrence: CA)
  Receive Date: 20180831
  Receipt Date: 20200624
  Transmission Date: 20200713
  Serious: Yes (Other)
  Sender: FDA-Public Use
  Company Number: CA-APOTEX-2018AP019554

PATIENT
  Age: 77 Year
  Sex: Female

DRUGS (2)
  1. APO-LEFLUNOMIDE [Suspect]
     Active Substance: LEFLUNOMIDE
     Indication: PRODUCT USED FOR UNKNOWN INDICATION
     Dosage: UNK, QD
     Route: 065
  2. METHOTREXATE. [Suspect]
     Active Substance: METHOTREXATE
     Indication: RHEUMATOID ARTHRITIS
     Dosage: 20 MG, Q.WK.
     Route: 065

REACTIONS (4)
  - Drug hypersensitivity [Unknown]
  - Treatment failure [Unknown]
  - Gastrointestinal disorder [Unknown]
  - Drug intolerance [Unknown]
